FAERS Safety Report 14063469 (Version 1)
Quarter: 2017Q4

REPORT INFORMATION
  Report Type: Spontaneous
  Country: PL (occurrence: PL)
  Receive Date: 20171009
  Receipt Date: 20171009
  Transmission Date: 20180321
  Serious: Yes (Other)
  Sender: FDA-Public Use
  Company Number: PL-CORDEN PHARMA LATINA S.P.A.-PL-2017COR000203

PATIENT
  Age: 50 Year
  Sex: Female

DRUGS (5)
  1. CARBOPLATIN. [Suspect]
     Active Substance: CARBOPLATIN
     Dosage: 400 MG/M2 PER CYCLE LASTING 3 HOURS, 6 CYCLES WITH 3 WEEKS BREAK BETWEEN CYCLES
     Route: 042
     Dates: start: 201303
  2. PACLITAXEL. [Suspect]
     Active Substance: PACLITAXEL
     Indication: OVARIAN CANCER
     Dosage: 175 MG/M2 LASTING 3 HOURS, 6 CYCLES, WITH 3 WEEKS BETWEEN CYCLES
     Route: 042
     Dates: start: 200904
  3. CARBOPLATIN. [Suspect]
     Active Substance: CARBOPLATIN
     Dosage: 400 MG/M2 PER CYCLE LASTING 3 HOURS, 6 CYCLES WITH 3 WEEKS BREAK BETWEEN CYCLES
     Route: 042
     Dates: end: 201408
  4. CARBOPLATIN. [Suspect]
     Active Substance: CARBOPLATIN
     Indication: OVARIAN CANCER
     Dosage: 400 MG/M2 PER CYCLE, 6 CYCLES WITH 3 WEEKS BETWEEN CYCLES
     Route: 042
     Dates: start: 200904
  5. PACLITAXEL. [Suspect]
     Active Substance: PACLITAXEL
     Dosage: 175 MG/M2 LASTING 3 HOURS, 6 CYCLES, WITH 3 WEEKS BETWEEN CYCLES
     Route: 042
     Dates: start: 201303

REACTIONS (1)
  - Palmar-plantar erythrodysaesthesia syndrome [Unknown]
